FAERS Safety Report 8066535-8 (Version None)
Quarter: 2012Q1

REPORT INFORMATION
  Report Type: 
  Country: None (occurrence: None)
  Receive Date: 20120124
  Receipt Date: 20120111
  Transmission Date: 20120608
  Serious: Yes (Hospitalization)
  Sender: FDA-Public Use
  Company Number: US-UCBSA-048515

PATIENT
  Age: 75 Year
  Sex: Female
  Weight: 59.87 kg

DRUGS (30)
  1. MIRALAX [Concomitant]
     Indication: CONSTIPATION
     Dosage: 2 CAPSULES
     Dates: start: 20081014
  2. ACETAMINOPHEN [Concomitant]
     Indication: BACK PAIN
     Dates: start: 20000101
  3. IBUPROFEN [Concomitant]
     Indication: BACK PAIN
     Dates: start: 20090311
  4. OMEPRAZOLE [Concomitant]
     Indication: GASTROOESOPHAGEAL REFLUX DISEASE
     Dosage: 40/1100, 1 CAP
     Dates: start: 20080718
  5. GAVISCON [Concomitant]
     Indication: GASTROOESOPHAGEAL REFLUX DISEASE
     Dosage: 1 TAB
     Dates: start: 20080216
  6. PATANOL [Concomitant]
     Indication: DRY EYE
     Dates: start: 20081003
  7. DOCUSATE [Concomitant]
     Indication: CONSTIPATION
     Dates: start: 20040101
  8. SERTRALINE HYDROCHLORIDE [Concomitant]
     Indication: DEPRESSION
     Dates: start: 20080715
  9. STALEVO 100 [Concomitant]
     Indication: PARKINSON'S DISEASE
     Dosage: 37.5/150/200- 1 TAB
     Dates: start: 20080906
  10. STALEVO 100 [Concomitant]
     Dosage: 37.5/150/200,1 TAB
     Dates: start: 20091002
  11. LORAZEPAM [Concomitant]
     Indication: INSOMNIA
     Dates: start: 20080424
  12. CLONIDINE [Concomitant]
     Indication: HYPERTENSION
     Dates: start: 20080318
  13. CALCIUM + D [Concomitant]
     Indication: OSTEOPOROSIS
     Dates: start: 20000101
  14. DARVOCET [Concomitant]
     Indication: BACK PAIN
     Dosage: 1 TAB
     Dates: start: 20080507
  15. SIMVASTATIN [Concomitant]
     Indication: HYPERCHOLESTEROLAEMIA
     Dates: start: 20090114
  16. TUSSIONEX [Concomitant]
     Indication: COUGH
     Dates: start: 20090107
  17. SENNA [Concomitant]
     Indication: CONSTIPATION
     Dosage: QHS - ONCE AT BEDTIME
     Dates: start: 20070101
  18. CARVEDILOL [Concomitant]
     Indication: HYPERTENSION
     Dates: start: 20081014
  19. CARBAMAZEPINE [Concomitant]
     Indication: PROPHYLAXIS
     Dates: start: 20070101
  20. HYDRALAZINE HCL [Concomitant]
     Indication: HYPERTENSION
     Dates: start: 20080324
  21. ARTIFICIAL TEARS [Concomitant]
     Indication: DRY EYE
     Dates: start: 20081003
  22. GENTAC [Concomitant]
     Indication: LACRIMATION INCREASED
     Dosage: QHS
     Route: 047
     Dates: start: 20111122
  23. LORAZEPAM [Concomitant]
     Indication: ANXIETY
     Dates: start: 20080424
  24. LORAZEPAM [Concomitant]
     Dosage: QHS
     Dates: start: 20100513
  25. LEVOTHYROXINE SODIUM [Concomitant]
     Indication: HYPOTHYROIDISM
     Dates: start: 20010101
  26. ROTIGOTINE [Suspect]
     Indication: PARKINSON'S DISEASE
     Route: 062
     Dates: start: 20090702
  27. FUROSEMIDE [Concomitant]
     Indication: OEDEMA
     Dates: start: 20090501
  28. LORAZEPAM [Concomitant]
     Dosage: QHS
     Dates: start: 20100513
  29. MEGESTROL ACETATE [Concomitant]
     Indication: DECREASED APPETITE
     Dates: start: 20090731
  30. CLONIDINE [Concomitant]
     Dates: start: 20080408

REACTIONS (4)
  - AORTIC VALVE INCOMPETENCE [None]
  - DEEP VEIN THROMBOSIS [None]
  - MITRAL VALVE INCOMPETENCE [None]
  - CARDIOMEGALY [None]
